FAERS Safety Report 6671624-6 (Version None)
Quarter: 2010Q2

REPORT INFORMATION
  Report Type: 
  Country: None (occurrence: None)
  Receive Date: 20100406
  Receipt Date: 20100406
  Transmission Date: 20101027
  Serious: No
  Sender: FDA-Public Use
  Company Number: None

PATIENT
  Age: 51 Year
  Sex: Female
  Weight: 80.7403 kg

DRUGS (1)
  1. ACTONEL [Suspect]
     Dosage: 150MG

REACTIONS (2)
  - MOVEMENT DISORDER [None]
  - PAIN [None]
